FAERS Safety Report 11446338 (Version 1)
Quarter: 2015Q3

REPORT INFORMATION
  Report Type: Spontaneous
  Country: US (occurrence: US)
  Receive Date: 20150831
  Receipt Date: 20150831
  Transmission Date: 20151125
  Serious: No
  Sender: FDA-Public Use
  Company Number: US-ELI_LILLY_AND_COMPANY-US200812000605

PATIENT
  Sex: Female

DRUGS (1)
  1. CYMBALTA [Suspect]
     Active Substance: DULOXETINE HYDROCHLORIDE
     Indication: NEUROPATHY PERIPHERAL
     Dosage: 30 MG, UNK
     Dates: start: 20081201

REACTIONS (9)
  - Dizziness [Unknown]
  - Impaired driving ability [Unknown]
  - Muscle twitching [Unknown]
  - Disturbance in attention [Unknown]
  - Dyspepsia [Unknown]
  - Abdominal discomfort [Unknown]
  - Tachycardia [Unknown]
  - Feeling abnormal [Unknown]
  - Gait disturbance [Unknown]

NARRATIVE: CASE EVENT DATE: 20081201
